FAERS Safety Report 14843045 (Version 1)
Quarter: 2018Q2

REPORT INFORMATION
  Report Type: Spontaneous
  Country: US (occurrence: US)
  Receive Date: 20180503
  Receipt Date: 20180503
  Transmission Date: 20180711
  Serious: No
  Sender: FDA-Public Use
  Company Number: US-TEVA-2018-US-886321

PATIENT
  Sex: Female
  Weight: 10 kg

DRUGS (2)
  1. PULMOZYNE [Concomitant]
     Indication: CYSTIC FIBROSIS
  2. PROAIR HFA [Suspect]
     Active Substance: ALBUTEROL SULFATE
     Indication: CYSTIC FIBROSIS
     Dates: start: 201803

REACTIONS (3)
  - Drug screen positive [Unknown]
  - Product use in unapproved indication [Unknown]
  - Malaise [Unknown]
